FAERS Safety Report 13251854 (Version 2)
Quarter: 2017Q1

REPORT INFORMATION
  Report Type: Spontaneous
  Country: US (occurrence: US)
  Receive Date: 20170220
  Receipt Date: 20170315
  Transmission Date: 20170428
  Serious: No
  Sender: FDA-Public Use
  Company Number: US-PFIZER INC-2017075343

PATIENT
  Age: 70 Year
  Sex: Female

DRUGS (1)
  1. GABAPENTIN. [Suspect]
     Active Substance: GABAPENTIN
     Indication: PAIN
     Dosage: 300 MG, 3X/DAY

REACTIONS (1)
  - Drug ineffective for unapproved indication [Unknown]
